FAERS Safety Report 23793350 (Version 1)
Quarter: 2024Q2

REPORT INFORMATION
  Report Type: Spontaneous
  Country: CN (occurrence: CN)
  Receive Date: 20240429
  Receipt Date: 20240429
  Transmission Date: 20240716
  Serious: Yes (Death, Hospitalization, Other)
  Sender: FDA-Public Use
  Company Number: CN-Accord-421291

PATIENT
  Age: 76 Year
  Sex: Female

DRUGS (6)
  1. TIGECYCLINE [Suspect]
     Active Substance: TIGECYCLINE
     Indication: Pneumonia
  2. CEFOPERAZONE SODIUM SALT, SULBACTAM [Concomitant]
     Indication: Pneumonia
  3. VALPROATE SODIUM [Concomitant]
     Active Substance: VALPROATE SODIUM
     Indication: Product used for unknown indication
  4. ESOMEPRAZOLE [Concomitant]
     Active Substance: ESOMEPRAZOLE
     Indication: Product used for unknown indication
  5. CLOPIDOGREL BISULFATE [Concomitant]
     Active Substance: CLOPIDOGREL BISULFATE
     Indication: Product used for unknown indication
  6. TIGECYCLINE [Suspect]
     Active Substance: TIGECYCLINE
     Indication: Pneumonia

REACTIONS (8)
  - Acute hepatic failure [Fatal]
  - Drug-induced liver injury [Fatal]
  - Lower gastrointestinal haemorrhage [Fatal]
  - Shock haemorrhagic [Fatal]
  - Circulatory collapse [Fatal]
  - Respiratory tract infection [Fatal]
  - Metabolic acidosis [Fatal]
  - Hyperkalaemia [Fatal]
